FAERS Safety Report 7910477-2 (Version None)
Quarter: 2011Q4

REPORT INFORMATION
  Report Type: 
  Country: None (occurrence: None)
  Receive Date: 20111111
  Receipt Date: 20111102
  Transmission Date: 20120403
  Serious: Yes (Other)
  Sender: FDA-Public Use
  Company Number: PHFR2011GB05941

PATIENT
  Age: 31 Year
  Sex: Male

DRUGS (8)
  1. OMEPRAZOLE [Concomitant]
     Dosage: 20 MG, BID
     Route: 048
  2. LYRICA [Interacting]
     Indication: ANXIETY
     Dosage: 450 MG/DAY
     Route: 048
     Dates: start: 20110913, end: 20110917
  3. CITALOPRAM HYDROBROMIDE [Concomitant]
     Indication: DEPRESSION
     Dosage: 60 MG, QD
     Route: 048
  4. DIAZEPAM [Concomitant]
     Dosage: 4.5 MG, TID
     Route: 065
  5. CLOZAPINE [Suspect]
     Indication: SCHIZOPHRENIA, PARANOID TYPE
     Dosage: 125 MG, BID
     Route: 048
  6. LYRICA [Interacting]
     Dosage: 100 MG, TID
     Route: 065
  7. CORSODYL [Concomitant]
     Dosage: 10 ML, BID
     Route: 048
  8. MIRTAZAPINE [Concomitant]
     Indication: DEPRESSION
     Dosage: 45 MG, QD
     Route: 048

REACTIONS (7)
  - DRUG INTERACTION [None]
  - ENURESIS [None]
  - ATAXIA [None]
  - TREMOR [None]
  - GAIT DISTURBANCE [None]
  - MUSCLE TWITCHING [None]
  - DYSARTHRIA [None]
